FAERS Safety Report 9878195 (Version 3)
Quarter: 2014Q4

REPORT INFORMATION
  Report Type: Spontaneous
  Country: US (occurrence: US)
  Receive Date: 20140206
  Receipt Date: 20141001
  Transmission Date: 20150529
  Serious: Yes (Other)
  Sender: FDA-Public Use
  Company Number: US-009507513-1402USA002084

PATIENT
  Sex: Female

DRUGS (1)
  1. NUVARING [Suspect]
     Active Substance: ETHINYL ESTRADIOL\ETONOGESTREL
     Indication: PRODUCT USED FOR UNKNOWN INDICATION
     Dosage: UNK
     Route: 067
     Dates: start: 200611

REACTIONS (6)
  - Hypertension [Unknown]
  - Craniectomy [Unknown]
  - Intra-cerebral aneurysm operation [Unknown]
  - Hyperthyroidism [Unknown]
  - Depression [Unknown]
  - Ruptured cerebral aneurysm [Unknown]

NARRATIVE: CASE EVENT DATE: 200909
